FAERS Safety Report 14036495 (Version 1)
Quarter: 2017Q4

REPORT INFORMATION
  Report Type: Spontaneous
  Country: US (occurrence: US)
  Receive Date: 20171003
  Receipt Date: 20171003
  Transmission Date: 20180321
  Serious: No
  Sender: FDA-Public Use
  Company Number: US-ROCHE-1958320

PATIENT
  Age: 58 Year
  Sex: Male
  Weight: 113.5 kg

DRUGS (2)
  1. OCREVUS [Suspect]
     Active Substance: OCRELIZUMAB
     Indication: PROGRESSIVE MULTIFOCAL LEUKOENCEPHALOPATHY
     Dosage: DAY1 DAY 15 AND THEN EVERY 6 MONTHS ;ONGOING: YES
     Route: 042
     Dates: start: 20170614
  2. OCREVUS [Suspect]
     Active Substance: OCRELIZUMAB
     Route: 042
     Dates: start: 20170706

REACTIONS (6)
  - Back pain [Unknown]
  - Cerebral disorder [Not Recovered/Not Resolved]
  - Erythema [Recovered/Resolved]
  - Coccydynia [Not Recovered/Not Resolved]
  - Bone pain [Not Recovered/Not Resolved]
  - Muscular weakness [Not Recovered/Not Resolved]

NARRATIVE: CASE EVENT DATE: 20170614
